FAERS Safety Report 8406827 (Version 2)
Quarter: 2013Q2

REPORT INFORMATION
  Report Type: Spontaneous
  Country: US (occurrence: US)
  Receive Date: 20120215
  Receipt Date: 20130410
  Transmission Date: 20140414
  Serious: Yes (Other)
  Sender: FDA-Public Use
  Company Number: US-ROCHE-1039917

PATIENT
  Sex: Male
  Weight: 99.43 kg

DRUGS (7)
  1. ACCUTANE [Suspect]
     Indication: ACNE
     Route: 065
     Dates: start: 2000, end: 2001
  2. ACETAMINOPHEN [Concomitant]
  3. METAPROTERENOL INHALER [Concomitant]
  4. ENTERIC ASPIRIN [Concomitant]
  5. SALMETEROL [Concomitant]
  6. METHOCARBAMOL [Concomitant]
  7. HYDROCORTISONE [Concomitant]

REACTIONS (8)
  - Inflammatory bowel disease [Unknown]
  - Depression [Not Recovered/Not Resolved]
  - Injury [Unknown]
  - Colitis ulcerative [Unknown]
  - Crohn^s disease [Unknown]
  - Intestinal haemorrhage [Unknown]
  - Intestinal obstruction [Unknown]
  - Irritable bowel syndrome [Unknown]
